FAERS Safety Report 18443642 (Version 3)
Quarter: 2020Q4

REPORT INFORMATION
  Report Type: Spontaneous
  Country: US (occurrence: US)
  Receive Date: 20201030
  Receipt Date: 20201209
  Transmission Date: 20210114
  Serious: No
  Sender: FDA-Public Use
  Company Number: US-TEVA-2020-US-1843321

PATIENT
  Age: 62 Year
  Sex: Female

DRUGS (2)
  1. BUSPIRONE [Suspect]
     Active Substance: BUSPIRONE HYDROCHLORIDE
     Indication: ANXIETY
     Dosage: 20 MG IN THE MORNING, 20 MG MID-DAY, AND 20 MG AT NIGHT,?2 10 MG TABLETS 3 TIMES A DAY
     Route: 065
  2. BUSPIRONE [Suspect]
     Active Substance: BUSPIRONE HYDROCHLORIDE
     Route: 065
     Dates: start: 20201124, end: 20201126

REACTIONS (23)
  - Disorientation [Recovering/Resolving]
  - Asthenia [Recovered/Resolved]
  - Head discomfort [Recovering/Resolving]
  - Mood swings [Recovering/Resolving]
  - Tremor [Recovered/Resolved]
  - Balance disorder [Recovered/Resolved]
  - Anxiety [Recovered/Resolved]
  - Abdominal discomfort [Not Recovered/Not Resolved]
  - Malaise [Recovering/Resolving]
  - Feeling abnormal [Recovered/Resolved]
  - Overdose [Recovered/Resolved]
  - Headache [Recovered/Resolved]
  - Agitation [Recovered/Resolved]
  - Depression [Recovered/Resolved]
  - Insomnia [Recovering/Resolving]
  - Crying [Recovered/Resolved]
  - Mood altered [Recovered/Resolved]
  - Hypoaesthesia [Recovering/Resolving]
  - Product dispensing error [Unknown]
  - Wrong technique in product usage process [Unknown]
  - Somnolence [Recovered/Resolved]
  - Diarrhoea [Recovering/Resolving]
  - Product quality issue [Unknown]

NARRATIVE: CASE EVENT DATE: 202010
